FAERS Safety Report 8829183 (Version 2)
Quarter: 2013Q1

REPORT INFORMATION
  Report Type: Spontaneous
  Country: US (occurrence: US)
  Receive Date: 20121009
  Receipt Date: 20130124
  Transmission Date: 20140127
  Serious: No
  Sender: FDA-Public Use
  Company Number: US-009507513-1210USA002117

PATIENT
  Age: 47 Year
  Sex: Female

DRUGS (3)
  1. DULERA [Suspect]
     Indication: CHRONIC OBSTRUCTIVE PULMONARY DISEASE
     Dosage: 1 PUFF, BID
     Route: 055
     Dates: start: 20120814, end: 20120920
  2. COMBIVENT [Concomitant]
  3. NICOTINE [Concomitant]

REACTIONS (1)
  - Swollen tongue [Not Recovered/Not Resolved]
